FAERS Safety Report 10863362 (Version 5)
Quarter: 2015Q3

REPORT INFORMATION
  Report Type: Spontaneous
  Country: US (occurrence: US)
  Receive Date: 20150224
  Receipt Date: 20150814
  Transmission Date: 20151125
  Serious: Yes (Death, Hospitalization, Other)
  Sender: FDA-Public Use
  Company Number: US-009507513-0810USA01741

PATIENT
  Sex: Male
  Weight: 121.1 kg

DRUGS (4)
  1. BYETTA [Suspect]
     Active Substance: EXENATIDE
     Dosage: 10 MICROGRAM, BID
     Dates: start: 20111031, end: 20120504
  2. JANUVIA [Suspect]
     Active Substance: SITAGLIPTIN PHOSPHATE
     Dosage: 100 MG, QD
     Route: 048
     Dates: start: 200911, end: 20101201
  3. BYETTA [Suspect]
     Active Substance: EXENATIDE
     Indication: TYPE 2 DIABETES MELLITUS
     Dosage: 5 MICROGRAM, BID
     Dates: start: 20110720, end: 20111030
  4. JANUVIA [Suspect]
     Active Substance: SITAGLIPTIN PHOSPHATE
     Indication: TYPE 2 DIABETES MELLITUS
     Dosage: 50 MG, QD
     Route: 048
     Dates: start: 20090513, end: 20091130

REACTIONS (29)
  - Pancreatic carcinoma metastatic [Fatal]
  - Sepsis [Unknown]
  - Subdural haematoma [Unknown]
  - Vascular calcification [Unknown]
  - Abdominal hernia repair [Unknown]
  - Deep vein thrombosis [Unknown]
  - Renal disorder [Unknown]
  - Vena cava filter insertion [Unknown]
  - Coronary artery bypass [Unknown]
  - Benign prostatic hyperplasia [Unknown]
  - Atelectasis [Unknown]
  - Diverticulum [Unknown]
  - Abdominal hernia [Unknown]
  - Coronary artery disease [Unknown]
  - Arthritis [Unknown]
  - Cardiac failure congestive [Not Recovered/Not Resolved]
  - Intervertebral disc degeneration [Unknown]
  - Craniotomy [Unknown]
  - Haematuria [Unknown]
  - Metastases to lung [Unknown]
  - Sternotomy [Unknown]
  - Adrenal adenoma [Unknown]
  - Spinal osteoarthritis [Unknown]
  - Glaucoma [Unknown]
  - Metastasis [Unknown]
  - Hydrocholecystis [Unknown]
  - Chronic kidney disease [Not Recovered/Not Resolved]
  - Bile duct stent insertion [Unknown]
  - Fall [Unknown]

NARRATIVE: CASE EVENT DATE: 2009
